FAERS Safety Report 6970510-1 (Version None)
Quarter: 2010Q3

REPORT INFORMATION
  Report Type: 
  Country: None (occurrence: None)
  Receive Date: 20100824
  Receipt Date: 20100519
  Transmission Date: 20110219
  Serious: Yes (Other)
  Sender: FDA-Public Use
  Company Number: 2010063539

PATIENT
  Age: 68 Year
  Sex: Male

DRUGS (8)
  1. AMLODIPINE BESYLATE [Suspect]
  2. GLIPIZIDE [Suspect]
  3. LEVOTHYROXINE SODIUM [Suspect]
  4. LISINOPRIL AND HYDROCHLOROTHIAZIDE [Suspect]
  5. ATENOLOL [Suspect]
  6. LORATADINE [Suspect]
  7. METFORMIN HCL [Suspect]
  8. LOVASTATIN [Suspect]

REACTIONS (1)
  - BLOOD GLUCOSE INCREASED [None]
